FAERS Safety Report 9760179 (Version 1)
Quarter: 2013Q4

REPORT INFORMATION
  Report Type: Spontaneous
  Country: US (occurrence: None)
  Receive Date: 20131212
  Receipt Date: 20131212
  Transmission Date: 20140711
  Serious: Yes (Hospitalization, Other)
  Sender: FDA-Public Use
  Company Number: US-ZYDUS-002454

PATIENT
  Age: 47 Year
  Sex: Female

DRUGS (2)
  1. AMLODIPINE [Suspect]
  2. SOYACAL [Suspect]
     Route: 040

REACTIONS (11)
  - Shock [None]
  - Haemodynamic instability [None]
  - Overdose [None]
  - Metabolic acidosis [None]
  - Hyperlipidaemia [None]
  - Hypoxia [None]
  - Toxicity to various agents [None]
  - Nodal rhythm [None]
  - Muscle contractions involuntary [None]
  - Tongue disorder [None]
  - General physical health deterioration [None]
